FAERS Safety Report 22355268 (Version 2)
Quarter: 2024Q4

REPORT INFORMATION
  Report Type: Report from Study
  Country: DE (occurrence: DE)
  Receive Date: 20230523
  Receipt Date: 20241004
  Transmission Date: 20250115
  Serious: Yes (Death)
  Sender: ROCHE
  Company Number: DE-CELLTRION HEALTHCARE HUNGARY KFT-2023DE009907

PATIENT
  Age: 60 Year
  Sex: Female
  Weight: 72.5 kg

DRUGS (17)
  1. BEVACIZUMAB [Suspect]
     Active Substance: BEVACIZUMAB
     Indication: Neoplasm
     Dosage: 350 MG, EVERY 2 WEEKS
     Route: 065
     Dates: start: 20221102, end: 20230101
  2. LEUCOVORIN CALCIUM [Suspect]
     Active Substance: LEUCOVORIN CALCIUM
     Indication: Neoplasm
     Dosage: EVERY 2 WEEKS
     Route: 065
     Dates: start: 20230201
  3. IRINOTECAN [Suspect]
     Active Substance: IRINOTECAN
     Indication: Neoplasm
     Dosage: EVERY 2 WEEKS
     Route: 065
     Dates: start: 20230201
  4. FLUOROURACIL [Suspect]
     Active Substance: FLUOROURACIL
     Indication: Neoplasm
     Dosage: EVERY 2 WEEKS
     Route: 065
  5. FUROSEMIDE [Concomitant]
     Active Substance: FUROSEMIDE
  6. ONDANSETRON [Concomitant]
     Active Substance: ONDANSETRON
  7. CITALOPRAM [Concomitant]
     Active Substance: CITALOPRAM
  8. ATORVASTATIN [Concomitant]
     Active Substance: ATORVASTATIN
  9. CANDESARTAN [Concomitant]
     Active Substance: CANDESARTAN
  10. ELIQUIS [Concomitant]
     Active Substance: APIXABAN
  11. METOCLOPRAMIDE [Concomitant]
     Active Substance: METOCLOPRAMIDE
  12. LERCANIDIPINE [Concomitant]
     Active Substance: LERCANIDIPINE
  13. LOPERAMIDE [Concomitant]
     Active Substance: LOPERAMIDE
  14. CHOLECALCIFEROL [Concomitant]
     Active Substance: CHOLECALCIFEROL
  15. METAMIZOLE [Concomitant]
     Active Substance: METAMIZOLE
  16. PANTOPRAZOLE SODIUM [Concomitant]
     Active Substance: PANTOPRAZOLE SODIUM
  17. FERROUS SULFATE [Concomitant]
     Active Substance: FERROUS SULFATE

REACTIONS (2)
  - Neoplasm malignant [Fatal]
  - Sepsis [Fatal]

NARRATIVE: CASE EVENT DATE: 20230210
